FAERS Safety Report 15153685 (Version 1)
Quarter: 2018Q3

REPORT INFORMATION
  Report Type: Spontaneous
  Country: US (occurrence: US)
  Receive Date: 20180717
  Receipt Date: 20180717
  Transmission Date: 20181010
  Serious: No
  Sender: FDA-Public Use
  Company Number: US-SA-2018SA193976

PATIENT
  Age: 74 Year
  Weight: 65.76 kg

DRUGS (9)
  1. COLESEVELAM HYDROCHLORIDE. [Suspect]
     Active Substance: COLESEVELAM HYDROCHLORIDE
     Dosage: 1875 UNK
     Route: 048
     Dates: start: 201806, end: 201806
  2. VITAMIN D [ERGOCALCIFEROL] [Concomitant]
  3. BIOTIN [Concomitant]
     Active Substance: BIOTIN
  4. NEXIUM [ESOMEPRAZOLE MAGNESIUM] [Concomitant]
  5. ATORVASTATIN [Concomitant]
     Active Substance: ATORVASTATIN
  6. COLESEVELAM HYDROCHLORIDE. [Suspect]
     Active Substance: COLESEVELAM HYDROCHLORIDE
     Indication: DIARRHOEA
     Dosage: 1875 MG, BID
     Route: 048
     Dates: start: 201803, end: 201803
  7. WELCHOL [Suspect]
     Active Substance: COLESEVELAM HYDROCHLORIDE
     Indication: DIARRHOEA
     Dosage: 1875 MG, BID
     Route: 048
     Dates: start: 201806
  8. LISINOPRIL. [Concomitant]
     Active Substance: LISINOPRIL
  9. CHOLESTYRAMINE. [Concomitant]
     Active Substance: CHOLESTYRAMINE
     Dosage: UNK
     Dates: end: 201803

REACTIONS (3)
  - Diarrhoea [Recovered/Resolved]
  - Off label use [Not Recovered/Not Resolved]
  - Pyrexia [Unknown]

NARRATIVE: CASE EVENT DATE: 201806
